FAERS Safety Report 12266899 (Version 1)
Quarter: 2016Q2

REPORT INFORMATION
  Report Type: Spontaneous
  Country: US (occurrence: None)
  Receive Date: 20160413
  Receipt Date: 20160413
  Transmission Date: 20160815
  Serious: Yes (Other)
  Sender: FDA-Public Use
  Company Number: None

PATIENT
  Age: 33 Year
  Sex: Female
  Weight: 71.22 kg

DRUGS (11)
  1. LOESTRIN NOS [Concomitant]
     Active Substance: ETHINYL ESTRADIOL\NORETHINDRONE ACETATE
  2. PROBIOTIC [Concomitant]
     Active Substance: PROBIOTICS NOS
  3. OXCARBAZEPINE. [Suspect]
     Active Substance: OXCARBAZEPINE
     Indication: AFFECTIVE DISORDER
     Route: 048
     Dates: start: 20160325, end: 20160407
  4. AMBIEN [Concomitant]
     Active Substance: ZOLPIDEM TARTRATE
  5. VANLAFAXINE [Concomitant]
     Active Substance: VENLAFAXINE HYDROCHLORIDE
  6. QUITIAPINE [Concomitant]
  7. KRILL OIL [Concomitant]
     Active Substance: DIETARY SUPPLEMENT
  8. INOSITOL [Concomitant]
     Active Substance: INOSITOL
  9. CLONAZAPAM [Concomitant]
     Active Substance: CLONAZEPAM
  10. MULTIVITAMIN [Concomitant]
     Active Substance: VITAMINS
  11. MAGNESIUM [Concomitant]
     Active Substance: MAGNESIUM

REACTIONS (4)
  - Feeling guilty [None]
  - Depression [None]
  - Self-injurious ideation [None]
  - Suicidal ideation [None]

NARRATIVE: CASE EVENT DATE: 20160405
